FAERS Safety Report 7089535-3 (Version None)
Quarter: 2010Q4

REPORT INFORMATION
  Report Type: 
  Country: None (occurrence: None)
  Receive Date: 20101108
  Receipt Date: 20101026
  Transmission Date: 20110411
  Serious: Yes (Hospitalization, Other)
  Sender: FDA-Public Use
  Company Number: US-ELI_LILLY_AND_COMPANY-US201008007248

PATIENT
  Sex: Female

DRUGS (15)
  1. FORTEO [Suspect]
     Indication: OSTEOPOROSIS
     Dosage: 20 UG, DAILY (1/D)
     Dates: start: 20100518
  2. AMARYL [Concomitant]
  3. CRESTOR [Concomitant]
  4. FOSAMAX [Concomitant]
     Dosage: UNK, WEEKLY (1/W)
  5. LUMIGAN [Concomitant]
  6. PROCARDIA [Concomitant]
  7. PRINIVIL [Concomitant]
  8. ATENOLOL [Concomitant]
  9. HYDROCHLOROTHIAZIDE [Concomitant]
  10. GLUCOPHAGE [Concomitant]
  11. NIACIN [Concomitant]
  12. ASPIRIN [Concomitant]
  13. CALCIUM [Concomitant]
  14. VITAMIN D [Concomitant]
  15. TYLENOL (CAPLET) [Concomitant]

REACTIONS (2)
  - AORTIC ANEURYSM [None]
  - FALL [None]
